FAERS Safety Report 5000793-9 (Version None)
Quarter: 2006Q2

REPORT INFORMATION
  Report Type: 
  Country: None (occurrence: None)
  Receive Date: 20060512
  Receipt Date: 20060502
  Transmission Date: 20061013
  Serious: Yes (Hospitalization, Disabling)
  Sender: FDA-Public Use
  Company Number: US-MERCK-0605USA00802

PATIENT
  Age: 47 Year
  Sex: Female
  Weight: 98 kg

DRUGS (4)
  1. VIOXX [Suspect]
     Indication: ARTHRITIS
     Route: 048
  2. PREMARIN [Concomitant]
     Route: 065
  3. LEXAPRO [Concomitant]
     Route: 065
  4. CARBATROL [Concomitant]
     Route: 065

REACTIONS (3)
  - BACK INJURY [None]
  - CEREBROVASCULAR ACCIDENT [None]
  - CONVULSION [None]
